FAERS Safety Report 5927246-5 (Version None)
Quarter: 2008Q4

REPORT INFORMATION
  Report Type: 
  Country: None (occurrence: None)
  Receive Date: 20081022
  Receipt Date: 20081010
  Transmission Date: 20090506
  Serious: Yes (Other)
  Sender: FDA-Public Use
  Company Number: BR-PFIZER INC-2008086205

PATIENT
  Sex: Female
  Weight: 65 kg

DRUGS (3)
  1. FRONTAL [Suspect]
     Indication: SLEEP DISORDER
     Route: 048
     Dates: start: 20080501
  2. SERTRALINE [Suspect]
     Indication: PANIC DISORDER
     Route: 048
     Dates: start: 20020101, end: 20060101
  3. DIUREX [Suspect]
     Route: 048
     Dates: start: 20060101

REACTIONS (6)
  - ANXIETY [None]
  - FATIGUE [None]
  - HEADACHE [None]
  - HYPERTENSION [None]
  - NERVOUSNESS [None]
  - PANIC DISORDER [None]
